FAERS Safety Report 11173409 (Version 7)
Quarter: 2016Q1

REPORT INFORMATION
  Report Type: Report from Study
  Country: GB (occurrence: GB)
  Receive Date: 20150609
  Receipt Date: 20160330
  Transmission Date: 20160525
  Serious: Yes (Hospitalization)
  Sender: FDA-Public Use
  Company Number: GB-AMGEN-GBRCT2015055221

PATIENT
  Age: 51 Year
  Sex: Female

DRUGS (4)
  1. DEXAMETHASONE. [Concomitant]
     Active Substance: DEXAMETHASONE
     Indication: PLASMA CELL MYELOMA
     Dosage: 40 MG, PER CHEMO REGIM
     Route: 048
     Dates: start: 20150108, end: 20150630
  2. CYCLOPHOSPHAMIDE. [Concomitant]
     Active Substance: CYCLOPHOSPHAMIDE
     Indication: PLASMA CELL MYELOMA
     Dosage: 500 MG, PER CHEMO REGIM
     Route: 048
     Dates: start: 20150108, end: 20150630
  3. CARFILZOMIB [Suspect]
     Active Substance: CARFILZOMIB
     Indication: PLASMA CELL MYELOMA
     Dosage: 32 MG/M2, PER CHEMO REGIM
     Route: 042
     Dates: start: 20150108, end: 20150630
  4. LENALIDOMIDE [Concomitant]
     Active Substance: LENALIDOMIDE
     Indication: PLASMA CELL MYELOMA
     Dosage: 25 MG, PER CHEMO REGIM
     Route: 048
     Dates: start: 20150108, end: 20150630

REACTIONS (3)
  - Loss of consciousness [Recovered/Resolved]
  - Plasma cell myeloma recurrent [Recovered/Resolved]
  - Cholecystitis [Recovered/Resolved]

NARRATIVE: CASE EVENT DATE: 20150602
